FAERS Safety Report 7580202-6 (Version None)
Quarter: 2011Q2

REPORT INFORMATION
  Report Type: 
  Country: None (occurrence: None)
  Receive Date: 20110629
  Receipt Date: 20110617
  Transmission Date: 20111010
  Serious: Yes (Hospitalization)
  Sender: FDA-Public Use
  Company Number: US-BAYER-201015389NA

PATIENT
  Age: 32 Year
  Sex: Female
  Weight: 80 kg

DRUGS (6)
  1. ANAPROX [Concomitant]
     Indication: PAIN
     Dosage: IT WILL NEED TO STOP WHEN HER INR IS THERAPEUTIC
     Dates: start: 20070401
  2. JASMINE [Concomitant]
  3. FLEXERIL [Concomitant]
  4. NORFLEX [Concomitant]
  5. NONSTEROIDALS [Concomitant]
  6. YASMIN [Suspect]
     Indication: POLYCYSTIC OVARIES
     Dosage: UNK UNK, QD
     Route: 048
     Dates: start: 20061201, end: 20070401

REACTIONS (7)
  - DYSPNOEA [None]
  - DEEP VEIN THROMBOSIS [None]
  - PAIN IN EXTREMITY [None]
  - OEDEMA PERIPHERAL [None]
  - HEADACHE [None]
  - PULMONARY EMBOLISM [None]
  - MENTAL DISORDER [None]
